FAERS Safety Report 6616264-X (Version None)
Quarter: 2010Q1

REPORT INFORMATION
  Report Type: 
  Country: None (occurrence: None)
  Receive Date: 20100305
  Receipt Date: 20100222
  Transmission Date: 20100710
  Serious: Yes (Hospitalization)
  Sender: FDA-Public Use
  Company Number: DE-ELI_LILLY_AND_COMPANY-DE200810007486

PATIENT
  Sex: Female
  Weight: 78 kg

DRUGS (8)
  1. GEMCITABINE HCL [Suspect]
     Indication: NON-SMALL CELL LUNG CANCER
     Dosage: 1200 MG/M2, DAY 1 AND DAY 8 EVERY 3 WEEKS
     Route: 042
     Dates: start: 20081016
  2. CETUXIMAB [Suspect]
     Indication: NON-SMALL CELL LUNG CANCER
     Dosage: 400 MG/M2, UNKNOWN
     Route: 042
     Dates: start: 20081016
  3. CETUXIMAB [Suspect]
     Dosage: 250 MG/M2, WEEKLY (1/W)
     Route: 042
  4. CARBOPLATIN [Suspect]
     Indication: NON-SMALL CELL LUNG CANCER
     Dosage: 497 MG (AUC5),ON DAY 1 EVERY 3 WEEKS
     Route: 042
     Dates: start: 20081016
  5. DIOVAN [Concomitant]
     Dosage: 80 MG, UNK
  6. ISOPTIN [Concomitant]
     Dosage: 40 MG, UNK
  7. FURORESE [Concomitant]
     Dosage: 40 MG, UNK
  8. METHIMAZOLE [Concomitant]
     Dosage: 5 MG, UNKNOWN
     Route: 065

REACTIONS (4)
  - BACTERIAL INFECTION [None]
  - LEUKOPENIA [None]
  - NEUTROPENIA [None]
  - THROMBOCYTOPENIA [None]
